FAERS Safety Report 8716571 (Version 2)
Quarter: 2012Q4

REPORT INFORMATION
  Report Type: 
  Country: CZ (occurrence: CZ)
  Receive Date: 20120810
  Receipt Date: 20121008
  Transmission Date: 20130627
  Serious: Yes (Death, Hospitalization)
  Sender: FDA-Public Use
  Company Number: CZ-BIOGENIDEC-2012BI027838

PATIENT
  Sex: Female

DRUGS (7)
  1. AVONEX [Suspect]
     Indication: MULTIPLE SCLEROSIS
     Route: 030
     Dates: start: 200811
  2. MEDROL [Concomitant]
     Indication: PRODUCT USED FOR UNKNOWN INDICATION
  3. IMURAN [Concomitant]
     Indication: PRODUCT USED FOR UNKNOWN INDICATION
     Dates: end: 201005
  4. LEVOTHYROXINE [Concomitant]
     Indication: HYPOTHYROIDISM
     Dates: end: 201005
  5. BISOPROLOL [Concomitant]
     Indication: PALPITATIONS
     Dates: end: 201005
  6. AZATIOPRIN [Concomitant]
     Indication: PRODUCT USED FOR UNKNOWN INDICATION
     Dates: end: 201005
  7. CALTRATE [Concomitant]
     Indication: BLOOD CALCIUM
     Dates: end: 201005

REACTIONS (4)
  - Multiple sclerosis relapse [Unknown]
  - Metastases to liver [Fatal]
  - Pancreatic neoplasm [Unknown]
  - Paraneoplastic syndrome [Unknown]
